FAERS Safety Report 9112042 (Version 1)
Quarter: 2013Q1

REPORT INFORMATION
  Report Type: Spontaneous
  Country: US (occurrence: US)
  Receive Date: 20130219
  Receipt Date: 20130219
  Transmission Date: 20140127
  Serious: No
  Sender: FDA-Public Use
  Company Number: US-BRISTOL-MYERS SQUIBB COMPANY-17052952

PATIENT
  Age: 66 Year
  Sex: Female

DRUGS (7)
  1. ABATACEPT SUBQ INJECTION 125MG/ML [Suspect]
     Indication: RHEUMATOID ARTHRITIS
     Dosage: FORMULATION-ORENCIA PFS
     Route: 058
  2. ATARAX [Concomitant]
  3. FOLIC ACID [Concomitant]
  4. LOSARTAN [Concomitant]
  5. METHOTREXATE [Concomitant]
  6. MULTIVITAMIN [Concomitant]
  7. OMEPRAZOLE [Concomitant]

REACTIONS (3)
  - Ear infection [Not Recovered/Not Resolved]
  - Urinary tract infection [Not Recovered/Not Resolved]
  - Laryngitis [Not Recovered/Not Resolved]
